FAERS Safety Report 8813132 (Version 1)
Quarter: 2012Q4

REPORT INFORMATION
  Report Type: 
  Country: US (occurrence: US)
  Receive Date: 20120927
  Receipt Date: 20120927
  Transmission Date: 20130627
  Serious: No
  Sender: FDA-Public Use
  Company Number: US-AMGEN-USASP2012040925

PATIENT
  Sex: Female

DRUGS (6)
  1. PROLIA [Suspect]
     Indication: OSTEOPOROSIS POSTMENOPAUSAL
     Dosage: UNK UNK, q6mo
     Dates: start: 2011
  2. METOPROLOL [Concomitant]
  3. PRAVASTATIN [Concomitant]
  4. PROBIOTIC [Concomitant]
  5. CALMAG [Concomitant]
  6. BABY ASPIRIN [Concomitant]

REACTIONS (5)
  - Joint crepitation [Unknown]
  - Oral mucosal erythema [Recovered/Resolved]
  - Autoimmune disorder [Unknown]
  - Blood cholesterol increased [Unknown]
  - Tooth disorder [Unknown]
